FAERS Safety Report 15120658 (Version 4)
Quarter: 2019Q4

REPORT INFORMATION
  Report Type: Spontaneous
  Country: US (occurrence: US)
  Receive Date: 20180709
  Receipt Date: 20191218
  Transmission Date: 20200122
  Serious: Yes (Hospitalization)
  Sender: FDA-Public Use
  Company Number: US-BAYER-2018-106278

PATIENT
  Age: 57 Year
  Sex: Female

DRUGS (9)
  1. XARELTO [Suspect]
     Active Substance: RIVAROXABAN
     Indication: STICKY PLATELET SYNDROME
     Dosage: 20 MG
     Route: 048
     Dates: end: 201801
  2. XARELTO [Suspect]
     Active Substance: RIVAROXABAN
     Indication: STICKY PLATELET SYNDROME
     Dosage: 10 MG
     Route: 048
     Dates: start: 201203
  3. XARELTO [Suspect]
     Active Substance: RIVAROXABAN
     Indication: PULMONARY EMBOLISM
     Dosage: 20 MG
     Route: 048
     Dates: start: 201402, end: 201712
  4. XARELTO [Suspect]
     Active Substance: RIVAROXABAN
     Indication: PULMONARY EMBOLISM
     Dosage: 10 MG
     Route: 048
     Dates: start: 201402, end: 201712
  5. ACETYLSALICYLIC ACID [Suspect]
     Active Substance: ASPIRIN
     Indication: CARDIOVASCULAR DISORDER
     Dosage: 81 MG
     Route: 048
     Dates: end: 201712
  6. CARBOPLATIN. [Suspect]
     Active Substance: CARBOPLATIN
     Indication: BREAST CANCER
     Dosage: UNK
  7. XARELTO [Suspect]
     Active Substance: RIVAROXABAN
     Indication: STICKY PLATELET SYNDROME
     Dosage: 20 MG
     Route: 048
     Dates: start: 201203
  8. XARELTO [Suspect]
     Active Substance: RIVAROXABAN
     Indication: STICKY PLATELET SYNDROME
     Dosage: 10 MG
     Route: 048
     Dates: end: 201801
  9. TAXOTERE [Suspect]
     Active Substance: DOCETAXEL
     Indication: BREAST CANCER
     Dosage: UNK

REACTIONS (4)
  - Gastrointestinal haemorrhage [Unknown]
  - Incorrect dose administered [Unknown]
  - Off label use [Unknown]
  - Haematuria [Unknown]

NARRATIVE: CASE EVENT DATE: 201203
